FAERS Safety Report 5341210-9 (Version None)
Quarter: 2007Q2

REPORT INFORMATION
  Report Type: 
  Country: None (occurrence: None)
  Receive Date: 20070405
  Receipt Date: 20061127
  Transmission Date: 20071010
  Serious: No
  Sender: FDA-Public Use
  Company Number: US200611004787

PATIENT
  Sex: Female

DRUGS (3)
  1. CYMBALTA [Suspect]
     Indication: MUSCULOSKELETAL PAIN
     Dosage: SEE IMAGE
     Dates: start: 20060101, end: 20061115
  2. CYMBALTA [Suspect]
     Indication: MUSCULOSKELETAL PAIN
     Dosage: SEE IMAGE
     Dates: start: 20060101
  3. CYMBALTA [Suspect]
     Indication: MUSCULOSKELETAL PAIN
     Dosage: SEE IMAGE
     Dates: start: 20060101

REACTIONS (6)
  - DIZZINESS [None]
  - FATIGUE [None]
  - LARYNGITIS [None]
  - NAUSEA [None]
  - NIGHTMARE [None]
  - TINNITUS [None]
